FAERS Safety Report 16780918 (Version 1)
Quarter: 2019Q3

REPORT INFORMATION
  Report Type: Spontaneous
  Country: US (occurrence: US)
  Receive Date: 20190717
  Receipt Date: 20190717
  Transmission Date: 20191005
  Serious: Yes (Life-Threatening)
  Sender: FDA-Public Use
  Company Number: None

PATIENT
  Age: 5 Month
  Sex: Male
  Weight: 107.5 kg

DRUGS (6)
  1. LYRICA [Suspect]
     Active Substance: PREGABALIN
     Indication: DIABETIC NEUROPATHY
     Route: 048
     Dates: start: 20190621, end: 20190624
  2. COLCHICINE. [Concomitant]
     Active Substance: COLCHICINE
  3. INVEGA [Concomitant]
     Active Substance: PALIPERIDONE
  4. LOSARTAN. [Concomitant]
     Active Substance: LOSARTAN
  5. NOVOLIN N INSULIN [Concomitant]
  6. MULTIVITAMIN [Concomitant]
     Active Substance: VITAMINS

REACTIONS (1)
  - Neck pain [None]

NARRATIVE: CASE EVENT DATE: 20190624
